FAERS Safety Report 15904515 (Version 1)
Quarter: 2019Q1

REPORT INFORMATION
  Report Type: Report from Study
  Country: US (occurrence: US)
  Receive Date: 20190204
  Receipt Date: 20190204
  Transmission Date: 20190417
  Serious: Yes (Hospitalization)
  Sender: FDA-Public Use
  Company Number: PHHY2019US022508

PATIENT
  Age: 18 Month
  Sex: Female
  Weight: 12.9 kg

DRUGS (4)
  1. GSK1120212 [Suspect]
     Active Substance: TRAMETINIB
     Indication: LANGERHANS^ CELL HISTIOCYTOSIS
     Dosage: 0.4 MG, QD
     Route: 048
     Dates: start: 20180918
  2. GSK2118436 [Suspect]
     Active Substance: DABRAFENIB
     Indication: LANGERHANS^ CELL HISTIOCYTOSIS
     Dosage: 34 MG, BID
     Route: 048
     Dates: start: 20180918
  3. GSK2118436 [Suspect]
     Active Substance: DABRAFENIB
     Dosage: 34 MG, BID
     Route: 048
     Dates: start: 20190124
  4. GSK1120212 [Suspect]
     Active Substance: TRAMETINIB
     Dosage: 0.4 MG, QD
     Route: 048
     Dates: start: 20190124

REACTIONS (5)
  - Acute respiratory failure [Not Recovered/Not Resolved]
  - Cough [Unknown]
  - Influenza [Not Recovered/Not Resolved]
  - Acute respiratory distress syndrome [Unknown]
  - Nasal congestion [Unknown]

NARRATIVE: CASE EVENT DATE: 20190124
